FAERS Safety Report 7220050-X (Version None)
Quarter: 2011Q1

REPORT INFORMATION
  Report Type: 
  Country: None (occurrence: None)
  Receive Date: 20110111
  Receipt Date: 20110106
  Transmission Date: 20110831
  Serious: Yes (Hospitalization)
  Sender: FDA-Public Use
  Company Number: A0903521A

PATIENT
  Sex: Female

DRUGS (2)
  1. XELODA [Suspect]
     Route: 065
  2. TYKERB [Suspect]
     Dosage: 1250MG PER DAY
     Route: 048
     Dates: start: 20100909

REACTIONS (1)
  - BREAST CANCER METASTATIC [None]
